FAERS Safety Report 10329150 (Version 1)
Quarter: 2014Q3

REPORT INFORMATION
  Report Type: Spontaneous
  Country: US (occurrence: US)
  Receive Date: 20140721
  Receipt Date: 20140721
  Transmission Date: 20150326
  Serious: No
  Sender: FDA-Public Use
  Company Number: US-009507513-1407USA008868

PATIENT
  Sex: Female

DRUGS (1)
  1. NEXPLANON [Suspect]
     Active Substance: ETONOGESTREL
     Indication: CONTRACEPTION
     Dosage: UNK, DOSE/FREQUENCY, AS DIRECTED.
     Route: 059
     Dates: start: 20140623, end: 20140707

REACTIONS (1)
  - Implant site infection [Recovering/Resolving]

NARRATIVE: CASE EVENT DATE: 2014
